FAERS Safety Report 17673761 (Version 1)
Quarter: 2020Q2

REPORT INFORMATION
  Report Type: Other
  Country: NO (occurrence: NO)
  Receive Date: 20200415
  Receipt Date: 20200415
  Transmission Date: 20200714
  Serious: Yes (Hospitalization)
  Sender: FDA-Public Use
  Company Number: NO-GE HEALTHCARE LIFE SCIENCES-2020CSU001506

PATIENT

DRUGS (4)
  1. CLARISCAN [Suspect]
     Active Substance: GADOTERATE MEGLUMINE
     Indication: MAGNETIC RESONANCE IMAGING
     Dosage: 11 ML, SINGLE
     Route: 042
     Dates: start: 20200206, end: 20200206
  2. CLARISCAN [Suspect]
     Active Substance: GADOTERATE MEGLUMINE
     Indication: GASTROINTESTINAL DISORDER
  3. MANNITOL. [Suspect]
     Active Substance: MANNITOL
     Indication: MAGNETIC RESONANCE IMAGING
     Dosage: STRENGTH OF SOLUTION NOT GIVEN IN REPORT
     Route: 042
     Dates: start: 20200206, end: 20200206
  4. BUSCOPAN [Suspect]
     Active Substance: BUTYLSCOPOLAMINE BROMIDE
     Indication: MAGNETIC RESONANCE IMAGING
     Dosage: 1 ML, SINGLE
     Route: 040
     Dates: start: 20200206, end: 20200206

REACTIONS (1)
  - Hepatitis acute [Recovered/Resolved]

NARRATIVE: CASE EVENT DATE: 20200206
